FAERS Safety Report 16540004 (Version 2)
Quarter: 2024Q3

REPORT INFORMATION
  Report Type: Spontaneous
  Country: IT (occurrence: IT)
  Receive Date: 20190708
  Receipt Date: 20240924
  Transmission Date: 20241017
  Serious: Yes (Other)
  Sender: MYLAN
  Company Number: IT-SA-2019SA015416

PATIENT
  Age: 59 Year
  Sex: Male
  Weight: 119 kg

DRUGS (10)
  1. EZETIMIBE\SIMVASTATIN [Suspect]
     Active Substance: EZETIMIBE\SIMVASTATIN
     Indication: Product used for unknown indication
     Dosage: UNK, (20 + 10 MG)
     Route: 065
  2. METFORMIN [Suspect]
     Active Substance: METFORMIN HYDROCHLORIDE
     Indication: Diabetes mellitus
     Dosage: 3000 MILLIGRAM
     Route: 065
  3. RAMIPRIL [Suspect]
     Active Substance: RAMIPRIL
     Indication: Product used for unknown indication
     Dosage: 10 MILLIGRAM
     Route: 048
  4. FUROSEMIDE [Suspect]
     Active Substance: FUROSEMIDE
     Indication: Product used for unknown indication
     Dosage: 25 MILLIGRAM
     Route: 065
  5. LEVEMIR [Suspect]
     Active Substance: INSULIN DETEMIR
     Indication: Diabetes mellitus
     Dosage: 54 INTERNATIONAL UNIT, BID (27 IU AT 8 AM AND 27 IU AT 8 PM)
     Route: 065
  6. ASPIRIN [Suspect]
     Active Substance: ASPIRIN
     Indication: Product used for unknown indication
     Dosage: 100 MG, UNK
     Route: 065
  7. ACARBOSE [Suspect]
     Active Substance: ACARBOSE
     Indication: Diabetes mellitus
     Dosage: 300 MILLIGRAM
     Route: 065
  8. VICTOZA [Suspect]
     Active Substance: LIRAGLUTIDE
     Indication: Diabetes mellitus
     Dosage: 1.8 MILLIGRAM, QD
     Route: 065
  9. ASPIRIN [Suspect]
     Active Substance: ASPIRIN
     Indication: Product used for unknown indication
     Dosage: 100 MILLIGRAM, UNK
     Route: 065
  10. LIRAGLUTIDE [Concomitant]
     Active Substance: LIRAGLUTIDE
     Indication: Diabetes mellitus
     Dosage: UNK
     Route: 065
     Dates: start: 201804

REACTIONS (2)
  - Diabetic metabolic decompensation [Recovering/Resolving]
  - Therapeutic product effect incomplete [Unknown]

NARRATIVE: CASE EVENT DATE: 20180101
